FAERS Safety Report 15208628 (Version 1)
Quarter: 2018Q3

REPORT INFORMATION
  Report Type: Spontaneous
  Country: US (occurrence: MY)
  Receive Date: 20180727
  Receipt Date: 20180727
  Transmission Date: 20181010
  Serious: Yes (Other)
  Sender: FDA-Public Use
  Company Number: MY-RECORDATI RARE DISEASES INC.-MY-R13005-18-00208

PATIENT
  Age: 2 Month
  Sex: Female

DRUGS (2)
  1. DACTINOMYCIN [Suspect]
     Active Substance: DACTINOMYCIN
     Indication: CONGENITAL FIBROSARCOMA
     Route: 065
  2. VINCRISTINE [Concomitant]
     Active Substance: VINCRISTINE
     Indication: CONGENITAL FIBROSARCOMA
     Route: 065

REACTIONS (3)
  - Tumour haemorrhage [Recovered/Resolved]
  - Off label use [Unknown]
  - Disseminated intravascular coagulation [Unknown]
